FAERS Safety Report 11338049 (Version 1)
Quarter: 2015Q3

REPORT INFORMATION
  Report Type: Spontaneous
  Country: US (occurrence: US)
  Receive Date: 20150803
  Receipt Date: 20150803
  Transmission Date: 20151125
  Serious: No
  Sender: FDA-Public Use
  Company Number: US-ELI_LILLY_AND_COMPANY-US201006000329

PATIENT
  Sex: Female

DRUGS (6)
  1. ZYPREXA ZYDIS [Suspect]
     Active Substance: OLANZAPINE
     Indication: DEMENTIA
     Dosage: 5 MG, DAILY (1/D)
  2. LACTULOSE. [Concomitant]
     Active Substance: LACTULOSE
  3. FENTANYL. [Concomitant]
     Active Substance: FENTANYL
  4. XANAX [Concomitant]
     Active Substance: ALPRAZOLAM
  5. WELLBUTRIN [Concomitant]
     Active Substance: BUPROPION HYDROCHLORIDE
  6. AMANTA [Concomitant]

REACTIONS (4)
  - Insomnia [Unknown]
  - Weight increased [Unknown]
  - Screaming [Unknown]
  - Off label use [Unknown]
